FAERS Safety Report 10662722 (Version 6)
Quarter: 2015Q4

REPORT INFORMATION
  Report Type: Report from Study
  Country: US (occurrence: US)
  Receive Date: 20141218
  Receipt Date: 20151215
  Transmission Date: 20160304
  Serious: Yes (Hospitalization, Other)
  Sender: FDA-Public Use
  Company Number: US-SA-2014SA166653

PATIENT
  Age: 47 Year
  Sex: Male

DRUGS (1)
  1. AUBAGIO [Suspect]
     Active Substance: TERIFLUNOMIDE
     Indication: MULTIPLE SCLEROSIS
     Route: 048
     Dates: start: 20141105

REACTIONS (10)
  - Drug ineffective [Unknown]
  - Dysphagia [Unknown]
  - Balance disorder [Unknown]
  - Nephrolithiasis [Unknown]
  - Abasia [Unknown]
  - Depressed mood [Unknown]
  - Blood urine present [Not Recovered/Not Resolved]
  - Infection [Unknown]
  - Chromaturia [Unknown]
  - Sepsis [Unknown]

NARRATIVE: CASE EVENT DATE: 201411
